FAERS Safety Report 8470768-6 (Version None)
Quarter: 2012Q2

REPORT INFORMATION
  Report Type: 
  Country: None (occurrence: None)
  Receive Date: 20120627
  Receipt Date: 20120619
  Transmission Date: 20120825
  Serious: Yes (Hospitalization, Other)
  Sender: FDA-Public Use
  Company Number: US-BAYER-2012-019846

PATIENT
  Age: 18 Year
  Sex: Female
  Weight: 46.259 kg

DRUGS (8)
  1. DROSPIRENONE AND ETHINYL ESTRADIOL [Suspect]
     Indication: PREMENSTRUAL SYNDROME
  2. HYOSCYAMINE [Concomitant]
     Dosage: 0.125 MG, Q4HR AS NEEDED
     Route: 060
  3. PREDNISONE TAB [Concomitant]
     Dosage: 10 MG,  AS DIRECTED
     Route: 048
  4. YASMIN [Suspect]
     Indication: OVARIAN CYST
     Dosage: UNK
     Route: 048
     Dates: start: 20060101, end: 20080801
  5. DROSPIRENONE AND ETHINYL ESTRADIOL [Suspect]
     Indication: OVARIAN CYST
     Dosage: UNK
     Route: 048
     Dates: start: 20080828, end: 20091101
  6. YASMIN [Suspect]
     Indication: PREMENSTRUAL SYNDROME
  7. PROVENTIL [Concomitant]
     Dosage: 1-2 PUFFS EVERY 4-6 HOURS AS NEEDED
     Route: 045
  8. PANTOPRAZOLE [Concomitant]
     Dosage: 40 MG, QD
     Route: 048

REACTIONS (4)
  - PAIN [None]
  - BILIARY DYSKINESIA [None]
  - INJURY [None]
  - CHOLECYSTECTOMY [None]
